FAERS Safety Report 9009183 (Version 1)
Quarter: 2013Q1

REPORT INFORMATION
  Report Type: Spontaneous
  Country: US (occurrence: US)
  Receive Date: 20130111
  Receipt Date: 20130111
  Transmission Date: 20140127
  Serious: Yes (Other)
  Sender: FDA-Public Use
  Company Number: US-MERCK-1301USA003005

PATIENT
  Age: 65 Year
  Sex: Female

DRUGS (6)
  1. SINGULAIR [Suspect]
  2. SERETIDE [Suspect]
     Dosage: UNK
     Route: 055
  3. VENTOLIN (ALBUTEROL) [Suspect]
     Dosage: UNK
  4. AMLODIPINE [Suspect]
     Dosage: UNK MG, UNK
  5. TRIAMCINOLONE [Concomitant]
     Dosage: UNK
  6. DIHYDROCODEINE BITARTRATE [Concomitant]
     Dosage: UNK
     Route: 048

REACTIONS (3)
  - Asthma [Unknown]
  - Rhinitis [Unknown]
  - Condition aggravated [Unknown]
